FAERS Safety Report 7495032-3 (Version None)
Quarter: 2011Q2

REPORT INFORMATION
  Report Type: 
  Country: None (occurrence: None)
  Receive Date: 20110520
  Receipt Date: 20101116
  Transmission Date: 20111010
  Serious: Yes (Other)
  Sender: FDA-Public Use
  Company Number: JP-AMGEN-US441640

PATIENT
  Age: 73 Year
  Sex: Female
  Weight: 45 kg

DRUGS (7)
  1. GASTER                             /00706001/ [Concomitant]
     Indication: GASTRIC ULCER
     Dosage: 10 MG, BID
  2. ALFAROL [Concomitant]
     Indication: OSTEOPOROSIS
     Dosage: 0.25 A?G, QD
  3. FOLIC ACID [Concomitant]
     Indication: PROPHYLAXIS
     Dosage: 5 MG, QWK
  4. GLUCOBAY [Concomitant]
     Indication: DIABETES MELLITUS
     Dosage: 100 MG, TID
  5. ENBREL [Suspect]
     Indication: RHEUMATOID ARTHRITIS
     Dosage: 25 MG, 2 TIMES/WK
     Route: 058
     Dates: start: 20091014, end: 20100812
  6. PREDNISOLONE [Concomitant]
     Indication: RHEUMATOID ARTHRITIS
     Dosage: 2 MG, QD
     Dates: start: 20040101
  7. RHEUMATREX [Concomitant]
     Indication: RHEUMATOID ARTHRITIS
     Dosage: 6 MG, QWK

REACTIONS (1)
  - HENOCH-SCHONLEIN PURPURA [None]
